FAERS Safety Report 26096362 (Version 3)
Quarter: 2025Q4

REPORT INFORMATION
  Report Type: Report from Study
  Country: CN (occurrence: CN)
  Receive Date: 20251127
  Receipt Date: 20251211
  Transmission Date: 20260118
  Serious: Yes (Hospitalization, Other)
  Sender: ROCHE
  Company Number: CN-ROCHE-3542145

PATIENT
  Age: 50 Year
  Sex: Female
  Weight: 57 kg

DRUGS (4)
  1. KADCYLA [Suspect]
     Active Substance: ADO-TRASTUZUMAB EMTANSINE
     Indication: HER2 positive breast cancer
     Dosage: DATE OF MOST RECENT DOSE PRIOR TO ADVERSE EVENT ONSET WAS 02/APR/2024
     Route: 041
     Dates: start: 20240402
  2. CIMETIDINE [Concomitant]
     Active Substance: CIMETIDINE
     Route: 042
     Dates: start: 20240424, end: 20240424
  3. PALONOSETRON HYDROCHLORIDE [Concomitant]
     Active Substance: PALONOSETRON HYDROCHLORIDE
  4. ENTECAVIR [Concomitant]
     Active Substance: ENTECAVIR
     Indication: Chronic hepatitis B
     Dates: start: 20240424

REACTIONS (15)
  - Platelet count decreased [Not Recovered/Not Resolved]
  - Bone pain [Recovered/Resolved]
  - Dizziness [Not Recovered/Not Resolved]
  - White blood cell count decreased [Not Recovered/Not Resolved]
  - Upper respiratory tract infection [Recovered/Resolved]
  - Arthralgia [Recovered/Resolved]
  - Neutrophil count decreased [Recovering/Resolving]
  - Aspartate aminotransferase increased [Not Recovered/Not Resolved]
  - Alanine aminotransferase increased [Recovered/Resolved]
  - Electrocardiogram QT prolonged [Recovered/Resolved]
  - Pyrexia [Recovered/Resolved]
  - Asthenia [Recovered/Resolved]
  - Gingival bleeding [Recovered/Resolved]
  - Hypercholesterolaemia [Recovered/Resolved]
  - Atrioventricular block first degree [Not Recovered/Not Resolved]

NARRATIVE: CASE EVENT DATE: 20240402
